FAERS Safety Report 6748913-X (Version None)
Quarter: 2010Q2

REPORT INFORMATION
  Report Type: 
  Country: None (occurrence: None)
  Receive Date: 20100601
  Receipt Date: 20100521
  Transmission Date: 20101027
  Serious: Yes (Death, Hospitalization)
  Sender: FDA-Public Use
  Company Number: NL-SANOFI-AVENTIS-2010SA017010

PATIENT
  Age: 77 Year
  Sex: Male
  Weight: 84.5 kg

DRUGS (12)
  1. AFLIBERCEPT [Suspect]
     Route: 042
     Dates: start: 20100203, end: 20100203
  2. AFLIBERCEPT [Suspect]
     Route: 042
     Dates: start: 20100316, end: 20100316
  3. DOCETAXEL [Suspect]
     Route: 042
     Dates: start: 20100203, end: 20100203
  4. DOCETAXEL [Suspect]
     Route: 042
     Dates: start: 20100316, end: 20100316
  5. PREDNISONE TAB [Suspect]
     Route: 048
     Dates: start: 20100223, end: 20100412
  6. ZOLADEX [Concomitant]
     Indication: HORMONE THERAPY
     Dates: start: 20020927
  7. PERSANTINE [Concomitant]
     Dates: start: 20050708
  8. ZOCOR [Concomitant]
     Dates: start: 20050708
  9. IMODIUM [Concomitant]
     Dates: start: 20100210
  10. PARACETAMOL [Concomitant]
  11. DICLOFENAC SODIUM [Concomitant]
  12. STRUMAZOL [Concomitant]
     Dates: start: 20100303

REACTIONS (3)
  - DYSPNOEA [None]
  - FEMUR FRACTURE [None]
  - VOMITING [None]
